FAERS Safety Report 7549485-2 (Version None)
Quarter: 2011Q2

REPORT INFORMATION
  Report Type: 
  Country: None (occurrence: None)
  Receive Date: 20110615
  Receipt Date: 20050914
  Transmission Date: 20111010
  Serious: Yes (Other)
  Sender: FDA-Public Use
  Company Number: PHFR2005GB02682

PATIENT
  Sex: Male

DRUGS (4)
  1. MINOCYCLINE HCL [Concomitant]
  2. CLOZAPINE [Suspect]
     Indication: SCHIZOPHRENIA
     Dates: start: 20040712
  3. SENNA-MINT WAF [Concomitant]
  4. HYOSCINE [Concomitant]

REACTIONS (3)
  - MALAISE [None]
  - ABDOMINAL PAIN [None]
  - GALLBLADDER DISORDER [None]
